FAERS Safety Report 6605035 (Version 30)
Quarter: 2013Q3

REPORT INFORMATION
  Report Type: Spontaneous
  Country: US (occurrence: US)
  Receive Date: 20080403
  Receipt Date: 20130910
  Transmission Date: 20140515
  Serious: Yes (Hospitalization, Other)
  Sender: FDA-Public Use
  Company Number: PHEH2008US03144

PATIENT
  Age: 73 Year
  Sex: Female

DRUGS (43)
  1. AREDIA [Suspect]
     Dosage: 90 MG IN 500 ML NS, QMO
     Dates: start: 200111, end: 200704
  2. ZOMETA [Suspect]
     Dosage: 4 MG IN 100 ML NS
     Route: 042
  3. DECADRON                                /CAN/ [Concomitant]
     Dates: start: 200111
  4. RADIATION TREATMENT [Concomitant]
  5. ALKERAN [Concomitant]
     Dates: start: 200111
  6. PREDNISONE [Concomitant]
  7. COZAAR [Concomitant]
     Dosage: 50 MG, DAILY
  8. ALBUTEROL [Concomitant]
  9. IPRATROPIUM [Concomitant]
  10. FENTANYL [Concomitant]
  11. VERSED [Concomitant]
  12. DUONEB [Concomitant]
  13. LORTAB [Concomitant]
  14. MUCINEX [Concomitant]
  15. PROTONIX ^PHARMACIA^ [Concomitant]
  16. BENADRYL ^WARNER-LAMBERT^               /USA/ [Concomitant]
  17. RELAFEN [Concomitant]
  18. VITAMIN D [Concomitant]
  19. TIMENTIN [Concomitant]
  20. ROCEPHIN [Concomitant]
  21. VELCADE [Concomitant]
  22. ZOFRAN [Concomitant]
  23. MIRALAX [Concomitant]
  24. LACTULOSE [Concomitant]
  25. AUGMENTIN                               /SCH/ [Concomitant]
  26. ARANESP [Concomitant]
  27. CLINDAMYCIN [Concomitant]
  28. HYZAAR [Concomitant]
  29. CALCIUM [Concomitant]
  30. NAPROXEN [Concomitant]
     Dosage: 400 MG, BID
  31. CEREFOLIN [Concomitant]
  32. MULTIVITAMIN ^LAPPE^ [Concomitant]
  33. HYDROCHLOROTHIAZIDE [Concomitant]
  34. DURAGESIC [Concomitant]
  35. IBUPROFEN [Concomitant]
  36. PERCOCET [Concomitant]
  37. CELEXA [Concomitant]
  38. PREMARIN                                /NEZ/ [Concomitant]
  39. HYDROCODONE [Concomitant]
  40. NEURONTIN [Concomitant]
  41. POTASSIUM CHLORIDE [Concomitant]
  42. ZOLOFT [Concomitant]
  43. WARFARIN SODIUM [Concomitant]

REACTIONS (133)
  - Pleural effusion [Unknown]
  - Atelectasis [Not Recovered/Not Resolved]
  - Empyema [Unknown]
  - Pleurisy [Unknown]
  - Pneumonia pseudomonal [Recovered/Resolved]
  - Chest pain [Unknown]
  - Pyrexia [Unknown]
  - Lung consolidation [Unknown]
  - Lymphocytic infiltration [Unknown]
  - Chills [Unknown]
  - Total lung capacity decreased [Unknown]
  - Emphysema [Unknown]
  - Granuloma [Unknown]
  - Dyspnoea exertional [Unknown]
  - Bronchiectasis [Unknown]
  - Lumbar spinal stenosis [Unknown]
  - Exostosis [Unknown]
  - Synovial cyst [Unknown]
  - Intervertebral disc protrusion [Unknown]
  - Spinal compression fracture [Unknown]
  - Back pain [Unknown]
  - Vertebral foraminal stenosis [Unknown]
  - Osteopenia [Unknown]
  - Cardiomegaly [Unknown]
  - Rectal haemorrhage [Unknown]
  - Mycobacterium avium complex infection [Unknown]
  - Osteoarthritis [Unknown]
  - Osteoporosis [Unknown]
  - Osteonecrosis of jaw [Recovered/Resolved]
  - Pain [Unknown]
  - Infection [Unknown]
  - Scar [Unknown]
  - Injury [Unknown]
  - Emotional distress [Unknown]
  - Anxiety [Unknown]
  - Physical disability [Unknown]
  - Inflammation [Unknown]
  - Osteolysis [Unknown]
  - Sensitivity of teeth [Unknown]
  - Gingival swelling [Unknown]
  - Jaw disorder [Unknown]
  - Oral discharge [Unknown]
  - Dental necrosis [Unknown]
  - Dental prosthesis user [Unknown]
  - Dental discomfort [Unknown]
  - Toothache [Unknown]
  - Bone lesion [Unknown]
  - Abscess jaw [Unknown]
  - Diverticulum [Unknown]
  - Plasma cell myeloma [Unknown]
  - Anaemia of chronic disease [Unknown]
  - Hyponatraemia [Unknown]
  - Sinus tachycardia [Unknown]
  - Coronary artery disease [Unknown]
  - Soft tissue mass [Unknown]
  - Plasmacytoma [Unknown]
  - Bronchitis [Unknown]
  - Cough [Unknown]
  - White blood cell count decreased [Unknown]
  - Mitral valve disease [Unknown]
  - Leukopenia [Unknown]
  - Orthostatic hypotension [Unknown]
  - Staphylococcal infection [Unknown]
  - Hyperthyroidism [Unknown]
  - Musculoskeletal chest pain [Unknown]
  - Arthralgia [Unknown]
  - Vertigo [Unknown]
  - Neutropenia [Unknown]
  - Colitis [Unknown]
  - Haemorrhoids [Unknown]
  - Migraine [Unknown]
  - Hot flush [Unknown]
  - Fatigue [Unknown]
  - Haematochezia [Unknown]
  - Herpes zoster [Unknown]
  - Neuralgia [Unknown]
  - Spondylolisthesis [Unknown]
  - Oedema [Unknown]
  - Pain in extremity [Unknown]
  - X-ray abnormal [Unknown]
  - Groin pain [Unknown]
  - Bursitis [Unknown]
  - Nerve injury [Unknown]
  - Asthenia [Unknown]
  - Decreased appetite [Unknown]
  - Weight decreased [Unknown]
  - Feeling abnormal [Unknown]
  - Hyperhidrosis [Unknown]
  - Insomnia [Unknown]
  - Constipation [Unknown]
  - Diarrhoea [Unknown]
  - Influenza [Unknown]
  - Deafness [Unknown]
  - Ecchymosis [Unknown]
  - Fall [Unknown]
  - Spinal disorder [Unknown]
  - Non-Hodgkin^s lymphoma [Unknown]
  - Pharyngitis [Unknown]
  - Goitre [Unknown]
  - Joint injury [Unknown]
  - Pulmonary fibrosis [Unknown]
  - Urinary incontinence [Unknown]
  - Neuropathy peripheral [Unknown]
  - Dementia [Unknown]
  - Delirium [Unknown]
  - Hip fracture [Unknown]
  - Dizziness [Unknown]
  - Ligament disorder [Unknown]
  - Hypertrophy [Unknown]
  - Sciatica [Unknown]
  - Rectal prolapse [Unknown]
  - Skin ulcer [Unknown]
  - Cardiac failure congestive [Unknown]
  - Tricuspid valve incompetence [Unknown]
  - Myositis [Unknown]
  - Myalgia [Unknown]
  - Arthritis [Unknown]
  - Cataract [Unknown]
  - Dilatation ventricular [Unknown]
  - Right atrial dilatation [Unknown]
  - Lung infection [Unknown]
  - Arthropathy [Unknown]
  - Spinal osteoarthritis [Unknown]
  - Spinal pain [Unknown]
  - Arteriosclerosis [Unknown]
  - Vascular calcification [Unknown]
  - Kyphosis [Unknown]
  - Cataract nuclear [Unknown]
  - Pelvic fracture [Unknown]
  - Joint dislocation [Unknown]
  - Pelvic pain [Unknown]
  - Confusional state [Unknown]
  - Brain injury [Unknown]
